FAERS Safety Report 6141787-X (Version None)
Quarter: 2009Q2

REPORT INFORMATION
  Report Type: 
  Country: None (occurrence: None)
  Receive Date: 20090402
  Receipt Date: 20090109
  Transmission Date: 20091009
  Serious: No
  Sender: FDA-Public Use
  Company Number: US-ABBOTT-09P-163-0496723-00

PATIENT
  Sex: Female
  Weight: 59.02 kg

DRUGS (2)
  1. LUPRON DEPOT [Suspect]
     Indication: ENDOMETRIOSIS
     Route: 030
     Dates: start: 20080301
  2. AYGESTIN [Suspect]
     Indication: ENDOMETRIOSIS
     Route: 048
     Dates: start: 20090108

REACTIONS (3)
  - ASTHENIA [None]
  - FATIGUE [None]
  - HEADACHE [None]
